FAERS Safety Report 25401837 (Version 1)
Quarter: 2025Q2

REPORT INFORMATION
  Report Type: Spontaneous
  Country: US (occurrence: US)
  Receive Date: 20250605
  Receipt Date: 20250605
  Transmission Date: 20250716
  Serious: No
  Sender: PFIZER
  Company Number: US-PFIZER INC-202500114031

PATIENT
  Age: 82 Year
  Sex: Male
  Weight: 101.15 kg

DRUGS (9)
  1. PAXLOVID [Suspect]
     Active Substance: NIRMATRELVIR\RITONAVIR
     Indication: COVID-19 treatment
     Dosage: [NIRMATRELVIR 300MG]/[RITONAVIR 100 MG]; 2X/DAY
     Route: 048
     Dates: start: 20250518, end: 20250523
  2. APIXABAN [Concomitant]
     Active Substance: APIXABAN
     Indication: Thrombosis
     Dosage: 5 MILLIGRAMS, TWICE A DAY
  3. ATORVASTATIN [Concomitant]
     Active Substance: ATORVASTATIN
     Indication: Hypercholesterolaemia
     Dosage: 80 MILLIGRAMS, ONCE A DAY
  4. METFORMIN [Concomitant]
     Active Substance: METFORMIN HYDROCHLORIDE
     Indication: Diabetes mellitus
     Dosage: 1000 MILLIGRAMS, TWICE A DAY
  5. FARXIGA [Concomitant]
     Active Substance: DAPAGLIFLOZIN PROPANEDIOL
     Dosage: 10 MILLIGRAMS; ONCE A DAY
  6. FEBUXOSTAT [Concomitant]
     Active Substance: FEBUXOSTAT
     Indication: Gout
     Dosage: 80 MILLIGRAMS; ONCE A DAY
  7. LASIX [Concomitant]
     Active Substance: FUROSEMIDE
     Indication: Renal failure
     Dosage: 40 MILLIGRAMS, ONCE A DAY
  8. LEVALBUTEROL [Concomitant]
     Active Substance: LEVALBUTEROL
     Indication: Obstructive airways disorder
  9. LISINOPRIL [Concomitant]
     Active Substance: LISINOPRIL
     Indication: Hypertension
     Dosage: 20 MILLIGRAMS, ONCE A DAY

REACTIONS (2)
  - COVID-19 [Unknown]
  - Disease recurrence [Unknown]
